FAERS Safety Report 10870955 (Version 3)
Quarter: 2015Q2

REPORT INFORMATION
  Report Type: Spontaneous
  Country: GB (occurrence: GB)
  Receive Date: 20150226
  Receipt Date: 20150522
  Transmission Date: 20150821
  Serious: Yes (Death)
  Sender: FDA-Public Use
  Company Number: PHFR2015GB001755

PATIENT
  Sex: Female

DRUGS (2)
  1. CLOZARIL [Suspect]
     Active Substance: CLOZAPINE
     Indication: PSYCHOTIC DISORDER
     Dosage: 25 MG, QD
     Route: 048
     Dates: start: 20110117
  2. CLOZARIL [Suspect]
     Active Substance: CLOZAPINE
     Indication: HALLUCINATION

REACTIONS (2)
  - Parkinson^s disease [Fatal]
  - Bronchopneumonia [Fatal]
